FAERS Safety Report 17228493 (Version 3)
Quarter: 2020Q1

REPORT INFORMATION
  Report Type: Spontaneous
  Country: US (occurrence: US)
  Receive Date: 20200103
  Receipt Date: 20200219
  Transmission Date: 20200409
  Serious: Yes (Other)
  Sender: FDA-Public Use
  Company Number: US-PFIZER INC-2019560565

PATIENT
  Age: 59 Year
  Sex: Male

DRUGS (8)
  1. DOXORUBICIN HCL [Suspect]
     Active Substance: DOXORUBICIN HYDROCHLORIDE
     Indication: BURKITT^S LYMPHOMA
     Dosage: UNK, CYCLIC (FOUR CYCLES OF CHEMOTHERAPY WITH C3D226 R-CODOX-M)
     Dates: end: 201902
  2. CYTARABINE. [Suspect]
     Active Substance: CYTARABINE
     Indication: BURKITT^S LYMPHOMA
  3. METHOTREXATE SODIUM. [Suspect]
     Active Substance: METHOTREXATE SODIUM
     Indication: METASTASES TO CENTRAL NERVOUS SYSTEM
     Dosage: UNK, CYCLIC
     Route: 037
     Dates: end: 201902
  4. METHOTREXATE SODIUM. [Suspect]
     Active Substance: METHOTREXATE SODIUM
     Indication: BURKITT^S LYMPHOMA
     Dosage: UNK, CYCLIC (FOUR CYCLES OF CHEMOTHERAPY WITH C3D226 R-CODOX-M)
     Route: 037
     Dates: end: 201902
  5. CYTARABINE. [Suspect]
     Active Substance: CYTARABINE
     Indication: METASTASES TO CENTRAL NERVOUS SYSTEM
     Dosage: UNK, CYCLIC
     Route: 037
     Dates: end: 201902
  6. VINCRISTINE SULFATE. [Suspect]
     Active Substance: VINCRISTINE SULFATE
     Indication: BURKITT^S LYMPHOMA
     Dosage: UNK, CYCLIC (FOUR CYCLES OF CHEMOTHERAPY WITH C3D226 R-CODOX-M)
     Dates: end: 201902
  7. RITUXIMAB. [Suspect]
     Active Substance: RITUXIMAB
     Indication: BURKITT^S LYMPHOMA
     Dosage: UNK, CYCLIC (FOUR CYCLES OF CHEMOTHERAPY WITH C3D226 R-CODOX-M)
     Dates: end: 201902
  8. CYCLOPHOSPHAMIDE. [Suspect]
     Active Substance: CYCLOPHOSPHAMIDE
     Indication: BURKITT^S LYMPHOMA
     Dosage: UNK, CYCLIC (FOUR CYCLES OF CHEMOTHERAPY WITH C3D226 R-CODOX-M)
     Dates: end: 201902

REACTIONS (6)
  - Tumour lysis syndrome [Recovered/Resolved]
  - Lactic acidosis [Recovered/Resolved]
  - Febrile neutropenia [Recovered/Resolved]
  - Escherichia bacteraemia [Recovered/Resolved]
  - Anaemia [Recovered/Resolved]
  - Thrombocytopenia [Recovered/Resolved]
